FAERS Safety Report 6329187-0 (Version None)
Quarter: 2009Q3

REPORT INFORMATION
  Report Type: 
  Country: None (occurrence: None)
  Receive Date: 20090826
  Receipt Date: 20090813
  Transmission Date: 20100115
  Serious: Yes (Hospitalization)
  Sender: FDA-Public Use
  Company Number: US-ELI_LILLY_AND_COMPANY-US200908003240

PATIENT
  Sex: Female

DRUGS (2)
  1. ZYPREXA [Suspect]
     Indication: PSYCHOTIC DISORDER
  2. ABILIFY [Concomitant]

REACTIONS (3)
  - BLOOD GLUCOSE INCREASED [None]
  - OFF LABEL USE [None]
  - PSYCHOTIC DISORDER [None]
